FAERS Safety Report 7313928-X (Version None)
Quarter: 2011Q1

REPORT INFORMATION
  Report Type: 
  Country: None (occurrence: None)
  Receive Date: 20110216
  Receipt Date: 20110216
  Transmission Date: 20110831
  Serious: Yes (Hospitalization)
  Sender: FDA-Public Use
  Company Number: None

PATIENT
  Sex: Female
  Weight: 86 kg

DRUGS (3)
  1. CARBOPLATIN [Suspect]
     Dosage: 715 MG GIVEN AT CYLE 1 AND CYLE 2
  2. NEULASTA [Suspect]
     Dosage: 6 MG GIVE AFTER EACH CYLE 1 AND 2
  3. TAXOL [Suspect]
     Dosage: 330 MG AT CYLE 1 AND CYLE 2

REACTIONS (1)
  - DEEP VEIN THROMBOSIS [None]
